FAERS Safety Report 19678321 (Version 5)
Quarter: 2021Q4

REPORT INFORMATION
  Report Type: Spontaneous
  Country: ZA (occurrence: ZA)
  Receive Date: 20210810
  Receipt Date: 20211216
  Transmission Date: 20220303
  Serious: Yes (Hospitalization)
  Sender: FDA-Public Use
  Company Number: ZA-CELLTRION INC.-2021ZA010784

PATIENT

DRUGS (10)
  1. INFLIXIMAB [Suspect]
     Active Substance: INFLIXIMAB
     Indication: Colitis ulcerative
     Dosage: UNK
     Dates: start: 202104
  2. INFLIXIMAB [Suspect]
     Active Substance: INFLIXIMAB
     Dosage: 300 MG
     Route: 042
     Dates: start: 20210520
  3. INFLIXIMAB [Suspect]
     Active Substance: INFLIXIMAB
     Dosage: 4TH INFUSION
     Dates: start: 20210719
  4. PREDNISONE [Concomitant]
     Active Substance: PREDNISONE
     Indication: Colitis ulcerative
     Dosage: 60 MG (STOP DATE: X 7/7) [REASON FOR CHANGE WAS ADMITTED WITH A FLARE]
     Dates: start: 20210726
  5. PREDNISONE [Concomitant]
     Active Substance: PREDNISONE
     Dosage: 60MG DLY PRESCRIBED FOR A WEEK ONLY
  6. BUTYLSCOPOLAMINE BROMIDE [Concomitant]
     Active Substance: BUTYLSCOPOLAMINE BROMIDE
     Indication: Colitis ulcerative
  7. TRAMADOL [Concomitant]
     Active Substance: TRAMADOL
     Indication: Colitis ulcerative
  8. OMEPRAZOLE [Concomitant]
     Active Substance: OMEPRAZOLE
     Indication: Colitis ulcerative
     Dosage: 20 MG
  9. ASACOL [Concomitant]
     Active Substance: MESALAMINE
     Indication: Colitis ulcerative
     Dosage: 4.8G DLY
  10. AZATHIOPRINE [Concomitant]
     Active Substance: AZATHIOPRINE
     Indication: Colitis ulcerative
     Dosage: 100MG DLY

REACTIONS (5)
  - Condition aggravated [Recovered/Resolved]
  - Weight increased [Unknown]
  - Drug level decreased [Recovered/Resolved]
  - Overdose [Unknown]
  - Unevaluable event [Unknown]

NARRATIVE: CASE EVENT DATE: 20210719
